FAERS Safety Report 12736180 (Version 2)
Quarter: 2016Q4

REPORT INFORMATION
  Report Type: Spontaneous
  Country: FR (occurrence: FR)
  Receive Date: 20160912
  Receipt Date: 20161206
  Transmission Date: 20170207
  Serious: Yes (Hospitalization)
  Sender: FDA-Public Use
  Company Number: FR-TEVA-690107ROM

PATIENT
  Age: 13 Year
  Sex: Female
  Weight: 43 kg

DRUGS (9)
  1. METHYLPREDNISOLONE MYLAN [Suspect]
     Active Substance: METHYLPREDNISOLONE
     Route: 041
     Dates: start: 20160623, end: 20160625
  2. ZOPHREN [Concomitant]
     Active Substance: ONDANSETRON
     Route: 042
     Dates: start: 20160623, end: 20160623
  3. HOLOXAN [Suspect]
     Active Substance: IFOSFAMIDE
     Indication: EWING^S SARCOMA
     Dosage: 2ND COURSE OF CHEMOTHERAPY
     Route: 041
     Dates: start: 20160623, end: 20160625
  4. VINCRISTINE HOSPIRA [Suspect]
     Active Substance: VINCRISTINE
     Indication: EWING^S SARCOMA
     Dosage: 2ND COURSE OF CHEMOTHERAPY
     Route: 041
     Dates: start: 20160623, end: 20160623
  5. VOGALENE [Concomitant]
     Active Substance: METOPIMAZINE
     Route: 042
     Dates: start: 20160623, end: 20160625
  6. UROMITEXAN [Concomitant]
     Active Substance: MESNA
     Route: 042
     Dates: start: 20160623, end: 20160625
  7. ETOPOSIDE TEVA [Suspect]
     Active Substance: ETOPOSIDE
     Indication: EWING^S SARCOMA
     Dosage: 2ND COURSE OF CHEMOTHERAPY
     Route: 041
     Dates: start: 20160623, end: 20160625
  8. BIONOLYTE 5 % [Concomitant]
  9. DOXORUBICINE TEVA [Suspect]
     Active Substance: DOXORUBICIN
     Indication: EWING^S SARCOMA
     Dosage: 2ND COURSE OF CHEMOTHERAPY
     Route: 042
     Dates: start: 20160623, end: 20160625

REACTIONS (4)
  - Anal inflammation [Recovered/Resolved]
  - Mucosal inflammation [Recovered/Resolved]
  - Decreased appetite [Recovered/Resolved]
  - Febrile bone marrow aplasia [Recovered/Resolved]

NARRATIVE: CASE EVENT DATE: 20160703
